FAERS Safety Report 16392633 (Version 2)
Quarter: 2019Q3

REPORT INFORMATION
  Report Type: Spontaneous
  Country: US (occurrence: US)
  Receive Date: 20190605
  Receipt Date: 20190805
  Transmission Date: 20191004
  Serious: No
  Sender: FDA-Public Use
  Company Number: US-GLAXOSMITHKLINE-US2019099098

PATIENT
  Age: 98 Year
  Sex: Female

DRUGS (1)
  1. FLUTICASONE PROPIONATE+SALMETEROL XINAFOATE INHALATION POWDER [Suspect]
     Active Substance: FLUTICASONE PROPIONATE\SALMETEROL XINAFOATE
     Indication: PRODUCT USED FOR UNKNOWN INDICATION
     Dosage: 1 PUFF(S), BID
     Route: 055
     Dates: start: 20190523, end: 20190530

REACTIONS (5)
  - Product substitution issue [Unknown]
  - Dyspnoea [Recovered/Resolved]
  - Adverse drug reaction [Unknown]
  - Malaise [Recovered/Resolved]
  - Headache [Recovered/Resolved]

NARRATIVE: CASE EVENT DATE: 20190523
